FAERS Safety Report 5543392-2 (Version None)
Quarter: 2007Q4

REPORT INFORMATION
  Report Type: 
  Country: None (occurrence: None)
  Receive Date: 20071210
  Receipt Date: 20061104
  Transmission Date: 20080405
  Serious: No
  Sender: FDA-Public Use
  Company Number: US-AMGEN-KDL199265

PATIENT
  Sex: Female

DRUGS (1)
  1. ENBREL [Suspect]
     Indication: PSORIASIS
     Route: 058
     Dates: start: 20061021

REACTIONS (5)
  - HYPERTENSION [None]
  - INJECTION SITE REACTION [None]
  - NAUSEA [None]
  - STOMACH DISCOMFORT [None]
  - UNEVALUABLE EVENT [None]
